FAERS Safety Report 7122436-0 (Version None)
Quarter: 2010Q4

REPORT INFORMATION
  Report Type: 
  Country: None (occurrence: None)
  Receive Date: 20101124
  Receipt Date: 20101116
  Transmission Date: 20110411
  Serious: Yes (Other)
  Sender: FDA-Public Use
  Company Number: US-AMGEN-USASP2010005517

PATIENT

DRUGS (1)
  1. ENBREL [Suspect]
     Indication: PSORIATIC ARTHROPATHY
     Dates: start: 20100715, end: 20101113

REACTIONS (6)
  - ABNORMAL SENSATION IN EYE [None]
  - DISTURBANCE IN ATTENTION [None]
  - EUPHORIC MOOD [None]
  - FATIGUE [None]
  - HEADACHE [None]
  - PRODUCTIVE COUGH [None]
